FAERS Safety Report 18575280 (Version 1)
Quarter: 2020Q4

REPORT INFORMATION
  Report Type: Spontaneous
  Country: GB (occurrence: GB)
  Receive Date: 20201203
  Receipt Date: 20201203
  Transmission Date: 20210114
  Serious: Yes (Disabling)
  Sender: FDA-Public Use
  Company Number: GB-BIOCON-BCN-2020-000101

PATIENT
  Age: 67 Year
  Sex: Female

DRUGS (4)
  1. ROSUVASTATIN CALCIUM. [Suspect]
     Active Substance: ROSUVASTATIN CALCIUM
     Dosage: DOSAGE: 10 MG MILLIGRAM(S) EVERY 1 WEEK(S)5MG TWICE A WEEK FOR 2 WEEKS THEN 5MG ONCE A WEEK FOR ONE
     Route: 048
  2. ROSUVASTATIN CALCIUM. [Suspect]
     Active Substance: ROSUVASTATIN CALCIUM
     Indication: BLOOD CHOLESTEROL INCREASED
     Dosage: DOSAGE: 10 MG MILLIGRAM(S) EVERY 1 WEEK(S)5MG TWICE A WEEK FOR 2 WEEKS THEN 5MG ONCE A WEEK FOR ONE
     Route: 048
     Dates: start: 20191015
  3. ROSUVASTATIN CALCIUM. [Suspect]
     Active Substance: ROSUVASTATIN CALCIUM
     Indication: BLOOD CHOLESTEROL INCREASED
     Dosage: DOSAGE: 10 MG MILLIGRAM(S) EVERY 1 WEEK(S)5MG TWICE A WEEK FOR 2 WEEKS THEN 5MG ONCE A WEEK FOR ONE
     Route: 048
     Dates: start: 201910, end: 20191101
  4. TRAMADOL. [Concomitant]
     Active Substance: TRAMADOL
     Indication: PRODUCT USED FOR UNKNOWN INDICATION

REACTIONS (1)
  - Muscle spasms [Not Recovered/Not Resolved]

NARRATIVE: CASE EVENT DATE: 20191026
